FAERS Safety Report 4736465-5 (Version None)
Quarter: 2005Q3

REPORT INFORMATION
  Report Type: 
  Country: None (occurrence: None)
  Receive Date: 20050804
  Receipt Date: 20050725
  Transmission Date: 20060218
  Serious: Yes (Hospitalization)
  Sender: FDA-Public Use
  Company Number: US-2005-006027

PATIENT
  Sex: Female

DRUGS (11)
  1. BETASERON [Suspect]
     Indication: SECONDARY PROGRESSIVE MULTIPLE SCLEROSIS
     Dosage: 8 MIU, EVERY 2D, SUBCUTANEOUS
     Route: 058
  2. METHADONE (METHADONE) [Suspect]
     Indication: BONE PAIN
     Dosage: 5 MG, 4X/DAY ORAL
     Route: 048
     Dates: end: 20050201
  3. METHADONE (METHADONE) [Suspect]
     Indication: BONE PAIN
     Dosage: 5 MG, 4X/DAY ORAL
     Route: 048
     Dates: start: 20050201, end: 20050301
  4. METHADONE (METHADONE) [Suspect]
     Indication: BONE PAIN
     Dosage: 5 MG, 4X/DAY ORAL
     Route: 048
     Dates: start: 20050301
  5. ZOFRAN [Concomitant]
  6. KLONOPIN [Concomitant]
  7. CADUET [Concomitant]
  8. PROCARDIA [Concomitant]
  9. ZOLOFT [Concomitant]
  10. THEOPHYLLINE [Concomitant]
  11. ADVAIR DISKUS (SALMETEROL XINAFOATE, FLUTICASONE PROPIONATE) [Concomitant]

REACTIONS (11)
  - ASTHENIA [None]
  - BLOOD PRESSURE INADEQUATELY CONTROLLED [None]
  - CIRCULATORY COLLAPSE [None]
  - DEPRESSED LEVEL OF CONSCIOUSNESS [None]
  - FALL [None]
  - HYPERTENSION [None]
  - INCORRECT DOSE ADMINISTERED [None]
  - MALAISE [None]
  - ORAL INTAKE REDUCED [None]
  - PAIN [None]
  - STRESS [None]
